FAERS Safety Report 9228873 (Version 2)
Quarter: 2013Q2

REPORT INFORMATION
  Report Type: Spontaneous
  Country: IT (occurrence: IT)
  Receive Date: 20130412
  Receipt Date: 20130506
  Transmission Date: 20140414
  Serious: Yes (Hospitalization)
  Sender: FDA-Public Use
  Company Number: IT-BRISTOL-MYERS SQUIBB COMPANY-18745463

PATIENT
  Age: 78 Year
  Sex: Male

DRUGS (6)
  1. COUMADIN TABS 5 MG [Suspect]
     Indication: ATRIAL FIBRILLATION
     Dosage: 1DF:1UNITS
     Route: 048
     Dates: start: 20121029, end: 20121029
  2. ENAPREN [Concomitant]
  3. DILATREND [Concomitant]
  4. LENTO-KALIUM [Concomitant]
     Dosage: CAPS
  5. LANOXIN [Concomitant]
  6. LASIX [Concomitant]

REACTIONS (3)
  - Ulcer haemorrhage [Recovered/Resolved]
  - Gastritis erosive [Recovered/Resolved]
  - Anaemia [Recovered/Resolved]
